FAERS Safety Report 20757929 (Version 1)
Quarter: 2022Q2

REPORT INFORMATION
  Report Type: Spontaneous
  Country: US (occurrence: None)
  Receive Date: 20220427
  Receipt Date: 20220427
  Transmission Date: 20220721
  Serious: Yes (Hospitalization, Other)
  Sender: FDA-Public Use
  Company Number: US-ROCHE-3083877

PATIENT
  Age: 75 Year
  Sex: Male

DRUGS (2)
  1. ESBRIET [Suspect]
     Active Substance: PIRFENIDONE
     Indication: Idiopathic pulmonary fibrosis
     Dosage: TAKE 1 TABLET (267 MG) BY MOUTH 3 TIMES A DAY FOR 7 DAYS THEN TAKE 2 TABLETS (534 MG) BY MOUTH 3 TIM
     Route: 048
  2. ESBRIET [Suspect]
     Active Substance: PIRFENIDONE
     Dosage: ONE 801MG TABLET THREE TIMES PER DAY WITH MEALS ;ONGOING: YES
     Route: 048
     Dates: start: 20210920

REACTIONS (3)
  - Cardiac disorder [Recovering/Resolving]
  - Dizziness [Recovering/Resolving]
  - Urinary retention [Recovered/Resolved]

NARRATIVE: CASE EVENT DATE: 20220223
